FAERS Safety Report 23832723 (Version 2)
Quarter: 2025Q2

REPORT INFORMATION
  Report Type: Spontaneous
  Country: US (occurrence: US)
  Receive Date: 20240508
  Receipt Date: 20250510
  Transmission Date: 20250717
  Serious: No
  Sender: SANOFI AVENTIS
  Company Number: US-SA-2024SA131718

PATIENT
  Age: 28 Year
  Sex: Male

DRUGS (3)
  1. DUPIXENT [Suspect]
     Active Substance: DUPILUMAB
     Indication: Eczema
     Route: 058
     Dates: start: 20230823, end: 20230823
  2. DUPIXENT [Suspect]
     Active Substance: DUPILUMAB
     Dosage: 300 MG, QOW
     Route: 058
     Dates: start: 202309, end: 202403
  3. DUPIXENT [Suspect]
     Active Substance: DUPILUMAB
     Dosage: 300 MG, QOW
     Route: 058
     Dates: start: 202411

REACTIONS (5)
  - Rebound eczema [Recovering/Resolving]
  - Dry skin [Recovering/Resolving]
  - Blister [Recovering/Resolving]
  - Pruritus [Recovering/Resolving]
  - Skin disorder [Recovering/Resolving]

NARRATIVE: CASE EVENT DATE: 20240101
